FAERS Safety Report 5759335-2 (Version None)
Quarter: 2008Q2

REPORT INFORMATION
  Report Type: 
  Country: None (occurrence: None)
  Receive Date: 20080605
  Receipt Date: 20080602
  Transmission Date: 20081010
  Serious: Yes (Hospitalization)
  Sender: FDA-Public Use
  Company Number: GB-WYE-G01620908

PATIENT
  Age: 44 Year
  Sex: Female

DRUGS (5)
  1. VENLAFAXINE HYDROCHLORIDE [Suspect]
     Indication: DEPRESSION
     Dosage: 37.5 MG FREQUENCY UNKNOWN
     Route: 048
     Dates: start: 20070501, end: 20080101
  2. VENLAFAXINE HYDROCHLORIDE [Suspect]
     Dosage: 75 MG FREQUENCY UNKNOWN
     Route: 048
     Dates: start: 20080101, end: 20080101
  3. VENLAFAXINE HYDROCHLORIDE [Suspect]
     Dosage: UNKNOWN
     Dates: start: 20080101, end: 20080101
  4. VENLAFAXINE HYDROCHLORIDE [Suspect]
     Dosage: UNKNOWN
     Route: 048
     Dates: start: 20080101, end: 20080201
  5. FLUPENTIXOL [Concomitant]
     Indication: PSYCHOTIC DISORDER
     Route: 030
     Dates: start: 19960101

REACTIONS (5)
  - DIZZINESS [None]
  - HEMIPARESIS [None]
  - HYPOAESTHESIA [None]
  - PARAESTHESIA [None]
  - VISUAL DISTURBANCE [None]
